FAERS Safety Report 19071902 (Version 1)
Quarter: 2021Q1

REPORT INFORMATION
  Report Type: Spontaneous
  Country: GB (occurrence: GB)
  Receive Date: 20210330
  Receipt Date: 20210330
  Transmission Date: 20210420
  Serious: Yes (Other)
  Sender: FDA-Public Use
  Company Number: GB-ACCORD-220735

PATIENT
  Age: 57 Year
  Sex: Female
  Weight: 120 kg

DRUGS (5)
  1. FELODIPINE. [Suspect]
     Active Substance: FELODIPINE
     Indication: BLOOD PRESSURE INADEQUATELY CONTROLLED
     Route: 048
     Dates: start: 20210313, end: 20210313
  2. ATORVASTATIN [Concomitant]
     Active Substance: ATORVASTATIN
  3. RAMIPRIL. [Concomitant]
     Active Substance: RAMIPRIL
  4. VAGIFEM [Concomitant]
     Active Substance: ESTRADIOL
  5. AMLODIPINE [Suspect]
     Active Substance: AMLODIPINE BESYLATE
     Indication: HYPERTENSION
     Route: 048
     Dates: start: 20201216, end: 20201221

REACTIONS (4)
  - Dizziness [Recovered/Resolved]
  - Musculoskeletal discomfort [Recovered/Resolved]
  - Palpitations [Recovered/Resolved]
  - Headache [Recovered/Resolved]

NARRATIVE: CASE EVENT DATE: 20201216
